FAERS Safety Report 15534567 (Version 1)
Quarter: 2018Q4

REPORT INFORMATION
  Report Type: Report from Study
  Country: SI (occurrence: SI)
  Receive Date: 20181022
  Receipt Date: 20181022
  Transmission Date: 20190205
  Serious: Yes (Death)
  Sender: FDA-Public Use
  Company Number: SI-ROCHE-2203415

PATIENT

DRUGS (2)
  1. CAPECITABINE. [Suspect]
     Active Substance: CAPECITABINE
     Indication: RECTAL CANCER
     Route: 048
  2. CAPECITABINE. [Suspect]
     Active Substance: CAPECITABINE
     Dosage: CONCOMITANTLY WITH RADIOTHERAPY, FIRST TO THE LAST DAY OF RADIOTHERAPY (INCLUDING WEEKENDS).
     Route: 048

REACTIONS (1)
  - Pulmonary embolism [Fatal]
